FAERS Safety Report 7605206-6 (Version None)
Quarter: 2011Q3

REPORT INFORMATION
  Report Type: 
  Country: None (occurrence: None)
  Receive Date: 20110705
  Receipt Date: 20110620
  Transmission Date: 20111222
  Serious: Yes (Hospitalization)
  Sender: FDA-Public Use
  Company Number: 2011MA007071

PATIENT
  Age: 53 Year
  Sex: Female

DRUGS (6)
  1. CLOZARIL [Suspect]
     Dosage: 250 MG;QD;PO
     Route: 048
  2. DIAZEPAM [Suspect]
     Dosage: 4 MG; PRN; PO
     Route: 048
  3. LORAZEPAM [Suspect]
     Dosage: 1 MG;QD;PO
     Route: 048
  4. LITHIUM CARBONATE [Concomitant]
  5. VALPROIC ACID [Suspect]
     Dosage: 600 MG; QD; PO
     Route: 048
  6. SULPIRIDE [Concomitant]

REACTIONS (3)
  - HYPERVENTILATION [None]
  - ANXIETY [None]
  - DYSPNOEA [None]
